FAERS Safety Report 11148553 (Version 1)
Quarter: 2015Q2

REPORT INFORMATION
  Report Type: Spontaneous
  Country: IT (occurrence: IT)
  Receive Date: 20150529
  Receipt Date: 20150529
  Transmission Date: 20150821
  Serious: Yes (Hospitalization)
  Sender: FDA-Public Use
  Company Number: IT-PFIZER INC-2015179734

PATIENT
  Age: 31 Year
  Sex: Female

DRUGS (2)
  1. DEPAKIN [Suspect]
     Active Substance: VALPROATE SODIUM
     Dosage: 26 DF, SINGLE
     Route: 048
     Dates: start: 20150114, end: 20150114
  2. XANAX [Suspect]
     Active Substance: ALPRAZOLAM
     Dosage: 30 GTT, SINGLE
     Route: 048
     Dates: start: 20150114, end: 20150114

REACTIONS (4)
  - Crying [Recovering/Resolving]
  - Toxicity to various agents [Recovering/Resolving]
  - Aggression [Recovering/Resolving]
  - Intentional self-injury [Recovering/Resolving]

NARRATIVE: CASE EVENT DATE: 20150114
